FAERS Safety Report 11101633 (Version 1)
Quarter: 2015Q2

REPORT INFORMATION
  Report Type: Report from Study
  Country: DE (occurrence: DE)
  Receive Date: 20150508
  Receipt Date: 20150508
  Transmission Date: 20150821
  Serious: Yes (Hospitalization, Other)
  Sender: FDA-Public Use
  Company Number: DE-ABBVIE-14K-062-1282194-00

PATIENT
  Age: 36 Year
  Sex: Female
  Weight: 74 kg

DRUGS (1)
  1. HUMIRA [Suspect]
     Active Substance: ADALIMUMAB
     Indication: CROHN^S DISEASE
     Route: 058
     Dates: start: 20110120, end: 20110701

REACTIONS (4)
  - Abscess [Recovered/Resolved]
  - Intestinal resection [Unknown]
  - Abscess [Recovered/Resolved]
  - Fistula [Unknown]

NARRATIVE: CASE EVENT DATE: 2011
